FAERS Safety Report 9773722 (Version 1)
Quarter: 2013Q4

REPORT INFORMATION
  Report Type: Spontaneous
  Country: IT (occurrence: None)
  Receive Date: 20131218
  Receipt Date: 20131218
  Transmission Date: 20140711
  Serious: Yes (Disabling)
  Sender: FDA-Public Use
  Company Number: 2069125

PATIENT
  Age: 80 Year
  Sex: Male

DRUGS (1)
  1. GEMCITABINE HYDROCHLORIDE [Suspect]
     Indication: LUNG SQUAMOUS CELL CARCINOMA STAGE IV
     Dosage: 1400 MG/M2 MILLIGRAMS/SQ. METER ( CYCLICAL) INTRAVENOUS ( NOT OTHERWISE SPECIFIED)
     Route: 042
     Dates: start: 20130903, end: 20130923

REACTIONS (2)
  - Peripheral ischaemia [None]
  - Necrosis [None]
